FAERS Safety Report 6906006 (Version 9)
Quarter: 2014Q1

REPORT INFORMATION
  Report Type: Spontaneous
  Country: US (occurrence: US)
  Receive Date: 20090210
  Receipt Date: 20140311
  Transmission Date: 20141002
  Serious: Yes (Hospitalization, Disabling, Other)
  Sender: FDA-Public Use
  Company Number: US-ASTRAZENECA-2009UW03345

PATIENT
  Age: 65 Year
  Sex: Male
  Weight: 74.8 kg

DRUGS (8)
  1. ATACAND [Suspect]
     Dosage: TAKING ONE PER DAY INSTEAD OF TWO
     Route: 048
  2. ATACAND HCT [Suspect]
     Indication: HYPERTENSION
     Dosage: 16/12.5 MG, BID
     Route: 048
  3. ATACAND HCT [Suspect]
     Indication: HYPERTENSION
     Dosage: 16/12.5 MG, UNK
     Route: 048
     Dates: start: 2012, end: 20140302
  4. LISINOPRIL [Suspect]
     Indication: HYPERTENSION
     Route: 048
  5. CRESTOR [Suspect]
     Route: 048
  6. TRAZODONE [Concomitant]
  7. FISH OIL (OTC) [Concomitant]
     Indication: ANGIOPATHY
     Dosage: DAILY
     Dates: start: 2012
  8. ASPIRIN [Concomitant]
     Indication: ANTICOAGULANT THERAPY

REACTIONS (16)
  - Cerebrovascular accident [Unknown]
  - Balance disorder [Unknown]
  - Bronchitis [Unknown]
  - Aneurysm [Unknown]
  - Hemiplegia [Unknown]
  - Hypertension [Unknown]
  - Malaise [Unknown]
  - Neck pain [Unknown]
  - Posture abnormal [Unknown]
  - Stress [Unknown]
  - Drug hypersensitivity [Unknown]
  - Cough [Unknown]
  - Dizziness [Unknown]
  - Intentional drug misuse [Unknown]
  - Drug ineffective [Unknown]
  - Drug dose omission [Unknown]
